FAERS Safety Report 5622155-3 (Version None)
Quarter: 2008Q1

REPORT INFORMATION
  Report Type: 
  Country: None (occurrence: None)
  Receive Date: 20080211
  Receipt Date: 20080128
  Transmission Date: 20080703
  Serious: Yes (Life-Threatening, Hospitalization)
  Sender: FDA-Public Use
  Company Number: GB-RANBAXY-2008RR-12808

PATIENT

DRUGS (8)
  1. ACETAMINOPHEN [Suspect]
     Indication: NASOPHARYNGITIS
     Dosage: 3000 MG, UNK
     Route: 048
     Dates: start: 20070730, end: 20070731
  2. ACETAMINOPHEN [Suspect]
     Indication: INFLUENZA
  3. CAFFEINE CITRATE [Suspect]
     Indication: NASOPHARYNGITIS
     Dosage: 150 MG, UNK
     Route: 048
     Dates: start: 20070730, end: 20070731
  4. CAFFEINE CITRATE [Suspect]
     Indication: INFLUENZA
  5. PHENYLEPHRINE HYDROCHLORIDE [Suspect]
     Indication: NASOPHARYNGITIS
     Dosage: 36.6 MG, UNK
     Route: 048
     Dates: start: 20070730, end: 20070731
  6. PHENYLEPHRINE HYDROCHLORIDE [Suspect]
     Indication: INFLUENZA
  7. ESCITALOPRAM [Concomitant]
  8. MIRTAZAPINE [Concomitant]

REACTIONS (3)
  - HEADACHE [None]
  - NAUSEA [None]
  - SUBARACHNOID HAEMORRHAGE [None]
